FAERS Safety Report 10211565 (Version 1)
Quarter: 2014Q2

REPORT INFORMATION
  Report Type: Spontaneous
  Country: US (occurrence: US)
  Receive Date: 20140602
  Receipt Date: 20140602
  Transmission Date: 20141212
  Serious: No
  Sender: FDA-Public Use
  Company Number: US-PFIZER INC-2014150526

PATIENT
  Sex: Female

DRUGS (1)
  1. LYRICA [Suspect]
     Dosage: 75 MG, UNK
     Dates: start: 20140529

REACTIONS (6)
  - Nausea [Unknown]
  - Delusion [Unknown]
  - Emotional disorder [Unknown]
  - Hallucination, visual [Unknown]
  - Vision blurred [Unknown]
  - Headache [Unknown]
